FAERS Safety Report 8530711-8 (Version None)
Quarter: 2012Q3

REPORT INFORMATION
  Report Type: 
  Country: None (occurrence: None)
  Receive Date: 20120723
  Receipt Date: 20120710
  Transmission Date: 20120928
  Serious: Yes (Hospitalization)
  Sender: FDA-Public Use
  Company Number: JP-ROCHE-1079689

PATIENT
  Sex: Male
  Weight: 69 kg

DRUGS (24)
  1. PURSENNID [Concomitant]
     Indication: CONSTIPATION
     Route: 048
  2. LANIRAPID [Concomitant]
     Indication: ATRIAL FIBRILLATION
     Route: 048
  3. TAMSULOSIN HCL [Concomitant]
     Indication: BENIGN PROSTATIC HYPERPLASIA
     Route: 048
  4. MAGLAX [Concomitant]
     Dosage: DOSAGE IS UNCERTAIN.
     Route: 048
  5. WARFARIN SODIUM [Interacting]
     Indication: MITRAL VALVE INCOMPETENCE
     Route: 048
     Dates: end: 20120611
  6. AMLODIPINE [Concomitant]
     Indication: HYPERTENSION
     Route: 048
  7. OXALIPLATIN [Suspect]
     Dosage: DOSAGE IS UNCERTAIN.
     Route: 041
     Dates: start: 20120507, end: 20120507
  8. FERROUS FUMARATE [Suspect]
     Indication: ANAEMIA
     Route: 048
  9. BIO-THREE [Concomitant]
     Dosage: DOSAGE IS UNCERTAIN.
     Route: 048
  10. XELODA [Interacting]
     Dosage: IT IS ADMINISTER/ONE WEEKLY HOLIDAY MEDICINE FOR TWO WEEKS.
     Route: 048
     Dates: start: 20120507, end: 20120520
  11. OXALIPLATIN [Concomitant]
  12. FERROUS FUMARATE [Concomitant]
  13. DIART [Concomitant]
     Indication: HYPERTENSION
     Route: 048
  14. DEXAMETHASONE SODIUM PHOSPHATE [Concomitant]
     Dosage: DOSAGE IS UNCERTAIN.
     Route: 041
  15. OXALIPLATIN [Suspect]
     Indication: COLON CANCER METASTATIC
     Dosage: DOSAGE IS UNCERTAIN.
     Route: 041
     Dates: start: 20120409, end: 20120409
  16. OXALIPLATIN [Suspect]
     Dosage: DOSAGE IS UNCERTAIN.
     Route: 041
     Dates: start: 20120528, end: 20120528
  17. NIPOLAZIN [Suspect]
     Indication: PRODUCT USED FOR UNKNOWN INDICATION
     Dosage: DOSAGE IS UNCERTAIN.
     Route: 048
  18. JANUVIA [Concomitant]
     Indication: DIABETES MELLITUS
     Route: 048
  19. LOXOPROFEN [Concomitant]
     Indication: ANALGESIC THERAPY
     Route: 048
     Dates: start: 20120310, end: 20120316
  20. LOSARTAN POTASSIUM [Concomitant]
     Indication: HYPERTENSION
     Route: 048
  21. XELODA [Interacting]
     Indication: COLON CANCER METASTATIC
     Dosage: IT IS ADMINISTER/ONE WEEKLY HOLIDAY MEDICINE FOR TWO WEEKS.
     Route: 048
     Dates: start: 20120409, end: 20120422
  22. XELODA [Interacting]
     Dosage: IT IS ADMINISTER/ONE WEEKLY HOLIDAY MEDICINE FOR TWO WEEKS.
     Route: 048
     Dates: start: 20120528, end: 20120610
  23. ALOXI [Concomitant]
     Indication: PROPHYLAXIS OF NAUSEA AND VOMITING
     Dosage: DOSAGE IS UNCERTAIN.
     Route: 041
  24. AMARYL [Concomitant]
     Indication: DIABETES MELLITUS
     Route: 048

REACTIONS (10)
  - INTERNATIONAL NORMALISED RATIO INCREASED [None]
  - DRUG INTERACTION [None]
  - NEUROPATHY PERIPHERAL [None]
  - COUGH [None]
  - DECREASED APPETITE [None]
  - NAUSEA [None]
  - PYREXIA [None]
  - PALMAR-PLANTAR ERYTHRODYSAESTHESIA SYNDROME [None]
  - INFECTIOUS PLEURAL EFFUSION [None]
  - FAECES DISCOLOURED [None]
